FAERS Safety Report 19362779 (Version 1)
Quarter: 2021Q2

REPORT INFORMATION
  Report Type: Spontaneous
  Country: US (occurrence: US)
  Receive Date: 20210602
  Receipt Date: 20210602
  Transmission Date: 20210717
  Serious: Yes (Other)
  Sender: FDA-Public Use
  Company Number: NVSC2021US121805

PATIENT
  Sex: Female

DRUGS (4)
  1. AVASTIN [Suspect]
     Active Substance: BEVACIZUMAB
     Indication: NEOVASCULAR AGE-RELATED MACULAR DEGENERATION
     Dosage: 1.25 MG (2.5 MG/ 0.1 ML)
     Route: 031
     Dates: start: 20200128
  2. AVASTIN [Suspect]
     Active Substance: BEVACIZUMAB
     Indication: CHOROIDAL NEOVASCULARISATION
  3. BEOVU [Suspect]
     Active Substance: BROLUCIZUMAB-DBLL
     Indication: NEOVASCULAR AGE-RELATED MACULAR DEGENERATION
     Dosage: UNK
     Route: 065
     Dates: start: 20200128
  4. BEOVU [Suspect]
     Active Substance: BROLUCIZUMAB-DBLL
     Indication: CHOROIDAL NEOVASCULARISATION

REACTIONS (12)
  - Panophthalmitis [Unknown]
  - Photopsia [Unknown]
  - Vitreous floaters [Unknown]
  - Retinal vein occlusion [Unknown]
  - Eye pain [Unknown]
  - Visual acuity reduced [Unknown]
  - Blindness unilateral [Unknown]
  - Vision blurred [Unknown]
  - Retinal artery occlusion [Unknown]
  - Visual impairment [Unknown]
  - Eye inflammation [Unknown]
  - Blindness [Unknown]
